FAERS Safety Report 9684716 (Version 1)
Quarter: 2013Q4

REPORT INFORMATION
  Report Type: Spontaneous
  Country: US (occurrence: None)
  Receive Date: 20131108
  Receipt Date: 20131108
  Transmission Date: 20140711
  Serious: Yes (Other)
  Sender: FDA-Public Use
  Company Number: FK201304844

PATIENT
  Age: 70 Year
  Sex: Female

DRUGS (2)
  1. VANCOMYCIN [Suspect]
     Indication: EVIDENCE BASED TREATMENT
  2. PIPERACILLIN\TAZOBACTAM [Concomitant]

REACTIONS (5)
  - Linear IgA disease [None]
  - Rash maculo-papular [None]
  - Rash pruritic [None]
  - Foreign body sensation in eyes [None]
  - Lacrimation increased [None]
